FAERS Safety Report 5904645-9 (Version None)
Quarter: 2008Q4

REPORT INFORMATION
  Report Type: 
  Country: None (occurrence: None)
  Receive Date: 20081001
  Receipt Date: 20080929
  Transmission Date: 20090506
  Serious: Yes (Hospitalization)
  Sender: FDA-Public Use
  Company Number: US-BRISTOL-MYERS SQUIBB COMPANY-14351753

PATIENT
  Age: 41 Year
  Sex: Male

DRUGS (19)
  1. COUMADIN [Suspect]
  2. ASCORBIC ACID [Suspect]
  3. POTASSIUM CHLORIDE [Suspect]
  4. LORTAB [Suspect]
  5. NEURONTIN [Suspect]
  6. SYNTHROID [Suspect]
  7. CALCIUM + VITAMIN D [Suspect]
  8. GLUCOSAMINE [Suspect]
  9. PHENERGAN HCL [Suspect]
  10. MIRENA [Suspect]
  11. MULTI-VITAMINS [Suspect]
  12. ARTHROTEC [Suspect]
  13. LASIX [Suspect]
  14. AMARYL [Suspect]
  15. PLAQUENIL [Suspect]
  16. PREDNISONE [Suspect]
  17. REQUIP [Suspect]
  18. ASPIRIN [Suspect]
  19. METHYLNALTREXONE BROMIDE [Suspect]

REACTIONS (1)
  - SYNCOPE [None]
